FAERS Safety Report 7461410-1 (Version None)
Quarter: 2011Q2

REPORT INFORMATION
  Report Type: 
  Country: None (occurrence: None)
  Receive Date: 20110428
  Receipt Date: 20110206
  Transmission Date: 20111010
  Serious: Yes (Other)
  Sender: FDA-Public Use
  Company Number: 2011GW000080

PATIENT
  Sex: Female

DRUGS (1)
  1. ZYCLARA [Suspect]
     Indication: PRODUCT USED FOR UNKNOWN INDICATION
     Dosage: 3.75 PCT;TOP
     Route: 061

REACTIONS (1)
  - ERYTHEMA MULTIFORME [None]
